FAERS Safety Report 9870281 (Version 1)
Quarter: 2014Q1

REPORT INFORMATION
  Report Type: Spontaneous
  Country: US (occurrence: None)
  Receive Date: 20140131
  Receipt Date: 20140131
  Transmission Date: 20141002
  Serious: Yes (Death)
  Sender: FDA-Public Use
  Company Number: 2014AP000434

PATIENT
  Age: 51 Year
  Sex: Female

DRUGS (8)
  1. GABAPENTIN [Suspect]
     Route: 048
  2. TRAMADOL HYDROCHLORIDE TABLETS [Suspect]
     Route: 048
  3. OXYCODONE [Suspect]
     Route: 048
  4. DIPHENHYDRAMINE [Suspect]
     Route: 048
  5. PROMETHAZINE [Suspect]
     Route: 048
  6. FLUOXETINE HYDROCHLORIDE ORAL SOLUTION [Suspect]
     Route: 048
  7. HYDROCODONE [Suspect]
     Route: 048
  8. CLONAZEPAM TABLETS, USP [Suspect]
     Route: 048

REACTIONS (1)
  - Completed suicide [None]
